FAERS Safety Report 24606712 (Version 1)
Quarter: 2024Q4

REPORT INFORMATION
  Report Type: Report from Study
  Country: DE (occurrence: DE)
  Receive Date: 20241112
  Receipt Date: 20241112
  Transmission Date: 20250114
  Serious: Yes (Hospitalization)
  Sender: TAKEDA
  Company Number: DE-TAKEDA-2024TUS053127

PATIENT
  Age: 35 Year
  Sex: Female

DRUGS (4)
  1. VONICOG ALFA [Suspect]
     Active Substance: VONICOG ALFA
     Indication: Von Willebrand^s disease
     Dosage: 2600 INTERNATIONAL UNIT
  2. VONICOG ALFA [Suspect]
     Active Substance: VONICOG ALFA
     Dosage: 3900 INTERNATIONAL UNIT
  3. VONICOG ALFA [Suspect]
     Active Substance: VONICOG ALFA
     Dosage: 3250 INTERNATIONAL UNIT
  4. VONICOG ALFA [Suspect]
     Active Substance: VONICOG ALFA
     Dosage: UNK

REACTIONS (7)
  - Sclerotherapy [Unknown]
  - Incorrect dose administered [Recovered/Resolved]
  - No adverse event [Unknown]
  - Product container issue [Unknown]
  - Product reconstitution quality issue [Unknown]
  - Intentional product use issue [Unknown]
  - Circumstance or information capable of leading to medication error [Unknown]

NARRATIVE: CASE EVENT DATE: 20240730
